FAERS Safety Report 11176515 (Version 1)
Quarter: 2015Q2

REPORT INFORMATION
  Report Type: Spontaneous
  Country: ES (occurrence: ES)
  Receive Date: 20150610
  Receipt Date: 20150610
  Transmission Date: 20150821
  Serious: Yes (Other)
  Sender: FDA-Public Use
  Company Number: ES-AUROBINDO-AUR-APL-2015-04925

PATIENT
  Age: 30 Year
  Sex: Female

DRUGS (1)
  1. FLUCONAZOLE 150MG [Suspect]
     Active Substance: FLUCONAZOLE
     Indication: VAGINAL INFECTION
     Dosage: 150 MG, UNK
     Route: 065

REACTIONS (9)
  - Rash [Unknown]
  - Skin lesion [Unknown]
  - Herpes dermatitis [Unknown]
  - Blister [Unknown]
  - Erythema [Unknown]
  - Rash vesicular [Unknown]
  - Papule [Unknown]
  - Rash erythematous [Unknown]
  - Scab [Unknown]
